FAERS Safety Report 6176501-5 (Version None)
Quarter: 2009Q2

REPORT INFORMATION
  Report Type: 
  Country: None (occurrence: None)
  Receive Date: 20090501
  Receipt Date: 20090424
  Transmission Date: 20091009
  Serious: Yes (Life-Threatening, Other)
  Sender: FDA-Public Use
  Company Number: PHHY2009JP15626

PATIENT
  Age: 91 Year
  Sex: Male

DRUGS (3)
  1. DIOVAN HCT [Suspect]
     Dosage: UNK
     Dates: start: 20090415, end: 20090416
  2. EPLERENONE [Concomitant]
     Dosage: 50 MG
     Route: 048
  3. MUCOSTA [Concomitant]
     Dosage: 300 MG
     Route: 048

REACTIONS (7)
  - BEDRIDDEN [None]
  - INFECTION [None]
  - INFLAMMATION [None]
  - JOINT SWELLING [None]
  - MULTI-ORGAN FAILURE [None]
  - OLIGURIA [None]
  - PAIN [None]
